FAERS Safety Report 16970388 (Version 2)
Quarter: 2019Q4

REPORT INFORMATION
  Report Type: Spontaneous
  Country: US (occurrence: US)
  Receive Date: 20191029
  Receipt Date: 20191129
  Transmission Date: 20200122
  Serious: Yes (Life-Threatening, Hospitalization, Other)
  Sender: FDA-Public Use
  Company Number: US-ASTRAZENECA-2019SF50498

PATIENT
  Age: 63 Year
  Sex: Male
  Weight: 93.9 kg

DRUGS (4)
  1. SIMVASTATIN. [Concomitant]
     Active Substance: SIMVASTATIN
     Dosage: 40.0MG UNKNOWN
     Dates: start: 2019
  2. ASPIRIN. [Concomitant]
     Active Substance: ASPIRIN
     Dosage: 81.0MG UNKNOWN
     Dates: start: 20190813, end: 20190820
  3. BRILINTA [Suspect]
     Active Substance: TICAGRELOR
     Indication: DEVICE EMBOLISATION
     Route: 048
  4. BRILINTA [Suspect]
     Active Substance: TICAGRELOR
     Indication: DEVICE EMBOLISATION
     Route: 048
     Dates: start: 20190814, end: 20190820

REACTIONS (5)
  - Hemiparesis [Unknown]
  - Platelet count decreased [Unknown]
  - Thalamic infarction [Unknown]
  - Cerebrovascular accident [Unknown]
  - Vascular stent thrombosis [Unknown]

NARRATIVE: CASE EVENT DATE: 2017
